FAERS Safety Report 11506833 (Version 1)
Quarter: 2015Q3

REPORT INFORMATION
  Report Type: Spontaneous
  Country: US (occurrence: US)
  Receive Date: 20150915
  Receipt Date: 20150915
  Transmission Date: 20151125
  Serious: Yes (Other)
  Sender: FDA-Public Use
  Company Number: US-JNJFOC-20150904508

PATIENT
  Sex: Female

DRUGS (3)
  1. BENADRYL [Suspect]
     Active Substance: DIPHENHYDRAMINE HYDROCHLORIDE
     Indication: PRODUCT USED FOR UNKNOWN INDICATION
     Route: 048
  2. BENADRYL CREAM [Suspect]
     Active Substance: DIPHENHYDRAMINE\ZINC ACETATE
     Indication: PRODUCT USED FOR UNKNOWN INDICATION
     Route: 061
  3. BENADRYL SPRAY [Suspect]
     Active Substance: DIPHENHYDRAMINE\ZINC ACETATE
     Indication: PRODUCT USED FOR UNKNOWN INDICATION
     Route: 061

REACTIONS (2)
  - Seizure [Unknown]
  - Drug hypersensitivity [Unknown]
